FAERS Safety Report 25587335 (Version 2)
Quarter: 2025Q3

REPORT INFORMATION
  Report Type: Spontaneous
  Country: JP (occurrence: JP)
  Receive Date: 20250721
  Receipt Date: 20250730
  Transmission Date: 20251021
  Serious: Yes (Life-Threatening, Other)
  Sender: PFIZER
  Company Number: JP-PFIZER INC-PV202500085837

PATIENT
  Age: 36 Year
  Sex: Female

DRUGS (10)
  1. FLUOROURACIL [Suspect]
     Active Substance: FLUOROURACIL
     Indication: Colon cancer metastatic
  2. FLUOROURACIL [Suspect]
     Active Substance: FLUOROURACIL
  3. FLUOROURACIL [Suspect]
     Active Substance: FLUOROURACIL
  4. FLUOROURACIL [Suspect]
     Active Substance: FLUOROURACIL
  5. FLUOROURACIL [Suspect]
     Active Substance: FLUOROURACIL
  6. LEUCOVORIN [Suspect]
     Active Substance: LEUCOVORIN\LEUCOVORIN CALCIUM
     Indication: Colon cancer metastatic
  7. OXALIPLATIN [Suspect]
     Active Substance: OXALIPLATIN
     Indication: Colon cancer metastatic
  8. IRINOTECAN HYDROCHLORIDE [Suspect]
     Active Substance: IRINOTECAN HYDROCHLORIDE
     Indication: Colon cancer metastatic
  9. BEVACIZUMAB [Suspect]
     Active Substance: BEVACIZUMAB
     Indication: Colon cancer metastatic
  10. THIAMINE [Suspect]
     Active Substance: THIAMINE
     Indication: Colon cancer metastatic
     Dosage: 100 MG, 1X/DAY

REACTIONS (2)
  - Lactic acidosis [Recovered/Resolved]
  - Off label use [Unknown]
